FAERS Safety Report 17599702 (Version 1)
Quarter: 2020Q1

REPORT INFORMATION
  Report Type: Spontaneous
  Country: US (occurrence: US)
  Receive Date: 20200330
  Receipt Date: 20200330
  Transmission Date: 20200409
  Serious: No
  Sender: FDA-Public Use
  Company Number: US-SA-2020SA077966

PATIENT
  Age: 76 Year
  Sex: Female

DRUGS (30)
  1. ACIDOPHILUS [Concomitant]
     Active Substance: LACTOBACILLUS ACIDOPHILUS
  2. CRANBERRY [ASCORBIC ACID;VACCINIUM SPP.] [Concomitant]
     Active Substance: ASCORBIC ACID\CRANBERRY
  3. OMEGA-3 [SALMO SALAR OIL] [Concomitant]
     Active Substance: ATLANTIC SALMON OIL
  4. DUPIXENT [Suspect]
     Active Substance: DUPILUMAB
     Dosage: 300 MG, QOW
     Route: 058
     Dates: start: 2020
  5. VITAMINS NOS [Concomitant]
     Active Substance: VITAMINS
  6. SELENIUM SULFIDE. [Concomitant]
     Active Substance: SELENIUM SULFIDE
  7. ZANTAC [Concomitant]
     Active Substance: RANITIDINE HYDROCHLORIDE
  8. METHYLPREDNISOLONE. [Concomitant]
     Active Substance: METHYLPREDNISOLONE
  9. CLONIDINE. [Concomitant]
     Active Substance: CLONIDINE
  10. FIBERCON [Concomitant]
     Active Substance: CALCIUM POLYCARBOPHIL
  11. POTASSIUM MAGNESIUM CITRATE [Concomitant]
  12. TYLENOL [Concomitant]
     Active Substance: ACETAMINOPHEN
  13. VITAMIN B12 [Concomitant]
     Active Substance: CYANOCOBALAMIN
  14. VITAMIN E [Concomitant]
     Active Substance: .ALPHA.-TOCOPHEROL
  15. HYDROXYZINE [Concomitant]
     Active Substance: HYDROXYZINE HYDROCHLORIDE
  16. BROMELAIN [Concomitant]
     Active Substance: BROMELAINS
  17. COMPLEX B [VITAMIN B COMPLEX] [Concomitant]
  18. GARLIC (DEODORIZED) [Concomitant]
  19. DUPIXENT [Suspect]
     Active Substance: DUPILUMAB
     Indication: DERMATITIS ATOPIC
     Dosage: 600 MG, 1X
     Route: 058
     Dates: start: 20200301, end: 20200301
  20. GEMFIBROZIL. [Concomitant]
     Active Substance: GEMFIBROZIL
  21. GINGER [ZINGIBER OFFICINALE] [Concomitant]
     Active Substance: GINGER
  22. SINGULAIR [Concomitant]
     Active Substance: MONTELUKAST SODIUM
  23. PLAVIX [Concomitant]
     Active Substance: CLOPIDOGREL BISULFATE
  24. VITAMIN C [Concomitant]
     Active Substance: ASCORBIC ACID
  25. FUROSEMIDE. [Concomitant]
     Active Substance: FUROSEMIDE
  26. HYDRALAZINE [Concomitant]
     Active Substance: HYDRALAZINE HYDROCHLORIDE
  27. VITAMIN D3 [Concomitant]
     Active Substance: CHOLECALCIFEROL
  28. ATENOLOL. [Concomitant]
     Active Substance: ATENOLOL
  29. NIACIN. [Concomitant]
     Active Substance: NIACIN
  30. OLUX [Concomitant]
     Active Substance: CLOBETASOL PROPIONATE

REACTIONS (4)
  - Eye pain [Unknown]
  - Rash [Unknown]
  - Headache [Unknown]
  - Neck pain [Unknown]

NARRATIVE: CASE EVENT DATE: 2020
